FAERS Safety Report 6682341-0 (Version None)
Quarter: 2010Q2

REPORT INFORMATION
  Report Type: 
  Country: None (occurrence: None)
  Receive Date: 20100415
  Receipt Date: 20100405
  Transmission Date: 20101027
  Serious: Yes (Other)
  Sender: FDA-Public Use
  Company Number: CA-PFIZER INC-2010043241

PATIENT
  Age: 55 Year
  Sex: Female

DRUGS (1)
  1. CHAMPIX [Suspect]
     Dosage: UNK

REACTIONS (4)
  - HYPERSENSITIVITY [None]
  - RASH [None]
  - RASH GENERALISED [None]
  - SKIN EXFOLIATION [None]
